FAERS Safety Report 10218519 (Version 2)
Quarter: 2014Q2

REPORT INFORMATION
  Report Type: Report from Study
  Country: GB (occurrence: GB)
  Receive Date: 20140605
  Receipt Date: 20140605
  Transmission Date: 20141212
  Serious: Yes (Death)
  Sender: FDA-Public Use
  Company Number: GB-ABBVIE-13P-167-1107250-00

PATIENT
  Age: 70 Year
  Sex: Female
  Weight: 74 kg

DRUGS (1)
  1. HUMIRA [Suspect]
     Indication: RHEUMATOID ARTHRITIS
     Route: 058
     Dates: start: 20110415, end: 20120426

REACTIONS (6)
  - Coronary artery disease [Fatal]
  - Arteriosclerosis coronary artery [Fatal]
  - Deep vein thrombosis [Fatal]
  - Nephrotic syndrome [Fatal]
  - Diverticulum [Fatal]
  - Rheumatoid arthritis [Fatal]
